FAERS Safety Report 9968419 (Version 1)
Quarter: 2014Q1

REPORT INFORMATION
  Report Type: Spontaneous
  Country: US (occurrence: US)
  Receive Date: 20140306
  Receipt Date: 20140306
  Transmission Date: 20141002
  Serious: No
  Sender: FDA-Public Use
  Company Number: US-ABBVIE-13P-163-1146690-00

PATIENT
  Age: 53 Year
  Sex: Female
  Weight: 61.29 kg

DRUGS (7)
  1. HUMIRA [Suspect]
     Indication: SARCOIDOSIS
     Dates: start: 20130828
  2. PREDNISONE [Concomitant]
     Indication: SARCOIDOSIS
  3. PRILOSEC [Concomitant]
     Indication: SUPPLEMENTATION THERAPY
  4. PROZAC [Concomitant]
     Indication: DEPRESSION
  5. ZIRTEC [Concomitant]
     Indication: HYPERSENSITIVITY
  6. CALCIUM [Concomitant]
     Indication: BONE DISORDER
  7. VITAMIN D [Concomitant]
     Indication: BONE DISORDER

REACTIONS (3)
  - Device malfunction [Unknown]
  - Off label use [Not Recovered/Not Resolved]
  - Injection site haemorrhage [Recovered/Resolved]
